FAERS Safety Report 10043727 (Version 1)
Quarter: 2014Q1

REPORT INFORMATION
  Report Type: Spontaneous
  Country: US (occurrence: US)
  Receive Date: 20140328
  Receipt Date: 20140328
  Transmission Date: 20141002
  Serious: Yes (Hospitalization)
  Sender: FDA-Public Use
  Company Number: US-ASTRAZENECA-2014SE19908

PATIENT
  Sex: 0

DRUGS (1)
  1. SYMBICORT [Suspect]
     Dosage: 160/4.5MCG, UNKNOWN
     Route: 055
     Dates: start: 20140219

REACTIONS (1)
  - Medication error [Unknown]
